FAERS Safety Report 22049107 (Version 1)
Quarter: 2023Q1

REPORT INFORMATION
  Report Type: Spontaneous
  Country: US (occurrence: US)
  Receive Date: 20230301
  Receipt Date: 20230301
  Transmission Date: 20230417
  Serious: Yes (Other)
  Sender: FDA-Public Use
  Company Number: US-INSUD PHARMA-2302US01048

PATIENT

DRUGS (1)
  1. SLYND [Suspect]
     Active Substance: DROSPIRENONE
     Indication: Product used for unknown indication
     Dosage: UNK
     Route: 048
     Dates: start: 202209

REACTIONS (2)
  - Haemoglobin decreased [Recovered/Resolved]
  - Heavy menstrual bleeding [Recovering/Resolving]

NARRATIVE: CASE EVENT DATE: 20220901
